FAERS Safety Report 8770772 (Version 1)
Quarter: 2012Q4

REPORT INFORMATION
  Report Type: 
  Country: TR (occurrence: TR)
  Receive Date: 20120906
  Receipt Date: 20120906
  Transmission Date: 20130627
  Serious: Yes (Hospitalization, Congenital Anomaly)
  Sender: FDA-Public Use
  Company Number: TR-MYLANLABS-2012S1017441

PATIENT
  Age: 36 Year
  Sex: Female

DRUGS (4)
  1. SPIRONOLACTONE AND HYDROCHLOROTHIAZIDE TABLETS, USP [Suspect]
     Indication: HIRSUTISM
     Dosage: 50mg hydrochlorothiazide/50mg spironolactone daily
     Route: 065
  2. SPIRONOLACTONE AND HYDROCHLOROTHIAZIDE TABLETS, USP [Suspect]
     Indication: HYPERTENSION
     Dosage: 50mg hydrochlorothiazide/50mg spironolactone daily
     Route: 065
  3. ORNIDAZOLE [Suspect]
     Indication: GENITAL INFECTION FEMALE
     Route: 048
  4. METRONIDAZOLE [Suspect]
     Indication: GENITAL INFECTION FEMALE
     Route: 067

REACTIONS (4)
  - Limb reduction defect [Unknown]
  - Maternal exposure during pregnancy [Unknown]
  - Oligohydramnios [Unknown]
  - Foetal death [Recovered/Resolved]
